FAERS Safety Report 10236447 (Version 2)
Quarter: 2014Q2

REPORT INFORMATION
  Report Type: Spontaneous
  Country: JP (occurrence: JP)
  Receive Date: 20140613
  Receipt Date: 20140613
  Transmission Date: 20141212
  Serious: Yes (Hospitalization)
  Sender: FDA-Public Use
  Company Number: JP-BRISTOL-MYERS SQUIBB COMPANY-20962775

PATIENT
  Age: 78 Year
  Sex: Male

DRUGS (1)
  1. ERBITUX SOLN FOR INF 5MG/ML [Suspect]
     Indication: HYPOPHARYNGEAL CANCER
     Route: 041

REACTIONS (1)
  - Cardiac failure [Not Recovered/Not Resolved]
